FAERS Safety Report 8621553-3 (Version None)
Quarter: 2012Q3

REPORT INFORMATION
  Report Type: 
  Country: None (occurrence: None)
  Receive Date: 20120824
  Receipt Date: 20120817
  Transmission Date: 20120928
  Serious: Yes (Death, Life-Threatening, Hospitalization, Other)
  Sender: FDA-Public Use
  Company Number: JP-009507513-2007SP017145

PATIENT

DRUGS (40)
  1. TEMODAL [Suspect]
     Dosage: 150 MG/M2, QD
     Route: 048
     Dates: start: 20080119, end: 20080123
  2. SULFAMETHOXAZOLE AND TRIMETHOPRIM [Concomitant]
     Indication: ANTIFUNGAL PROPHYLAXIS
     Route: 048
     Dates: start: 20060306, end: 20070425
  3. PREDNISOLONE [Concomitant]
     Route: 048
     Dates: start: 20070306, end: 20070405
  4. FAMOTIDINE [Concomitant]
     Indication: PROPHYLAXIS
     Route: 048
     Dates: start: 20070306, end: 20070405
  5. NORVASC [Concomitant]
     Route: 048
     Dates: end: 20070414
  6. BETAMETHASONE [Concomitant]
     Indication: DERMATITIS
     Route: 061
     Dates: start: 20070414, end: 20070421
  7. SOFRA TULLE [Concomitant]
     Indication: DERMATITIS
     Route: 061
     Dates: start: 20070414, end: 20070421
  8. CYTARABINE [Concomitant]
     Dosage: UNK
     Route: 028
     Dates: start: 20071016, end: 20071103
  9. LOXOPROFEN [Concomitant]
     Route: 048
     Dates: start: 20071112, end: 20071211
  10. DECADRON [Concomitant]
     Route: 048
     Dates: start: 20080105, end: 20080414
  11. SELBEX [Suspect]
     Indication: PROPHYLAXIS
     Dosage: UNK
     Route: 048
     Dates: start: 20070503, end: 20070623
  12. FAMOTIDINE [Concomitant]
     Indication: PROPHYLAXIS
     Dosage: UNK
     Route: 041
     Dates: start: 20080414, end: 20080424
  13. TEMODAL [Suspect]
     Dosage: 150 MG/M2, QD
     Route: 048
     Dates: start: 20070514, end: 20070518
  14. SULFAMETHOXAZOLE AND TRIMETHOPRIM [Concomitant]
     Dosage: UNK
     Route: 048
     Dates: start: 20070502, end: 20080414
  15. MINIPRESS [Concomitant]
     Route: 048
     Dates: end: 20070406
  16. TEMODAL [Suspect]
     Dosage: 150 MG/M2, QD
     Route: 048
     Dates: start: 20071010, end: 20071014
  17. TEMODAL [Suspect]
     Dosage: 150 MG/M2, QD
     Route: 048
     Dates: start: 20071215, end: 20071219
  18. MAGMITT [Concomitant]
     Indication: PROPHYLAXIS
     Dosage: UNK
     Route: 048
     Dates: start: 20070306, end: 20080414
  19. DEPAKENE [Concomitant]
     Indication: PROPHYLAXIS
     Route: 048
     Dates: end: 20070419
  20. MUCOSTA [Concomitant]
     Indication: PROPHYLAXIS
     Route: 048
     Dates: start: 20071112, end: 20071211
  21. TEMODAL [Suspect]
     Dosage: 150 MG/M2, QD
     Route: 048
     Dates: start: 20070716, end: 20070720
  22. PREDNISOLONE [Concomitant]
     Route: 028
     Dates: start: 20070312, end: 20070331
  23. FAMOTIDINE [Concomitant]
     Indication: PROPHYLAXIS
     Route: 048
     Dates: start: 20080104, end: 20080414
  24. MOTILIUM [Concomitant]
     Indication: PROPHYLAXIS
     Route: 048
     Dates: start: 20070306, end: 20070416
  25. METHOTREXATE [Concomitant]
     Route: 028
     Dates: start: 20070312, end: 20070331
  26. METHOTREXATE [Concomitant]
     Dosage: UNK
     Route: 028
     Dates: start: 20070926, end: 20071015
  27. PREDNISOLONE [Concomitant]
     Dosage: UNK
     Dates: start: 20070926, end: 20071103
  28. LEUCOVORIN CALCIUM [Concomitant]
     Dosage: UNK
     Route: 048
     Dates: start: 20070928, end: 20071016
  29. RAMELTEON [Concomitant]
     Indication: PROPHYLAXIS
     Dosage: UNK
     Route: 048
     Dates: start: 20070514, end: 20070819
  30. VALTREX [Concomitant]
     Route: 048
     Dates: start: 20080128, end: 20080414
  31. TEMODAL [Suspect]
     Dosage: 150 MG/M2, QD
     Route: 048
     Dates: start: 20070619, end: 20070623
  32. TEMODAL [Suspect]
     Dosage: 150 MG/M2, QD
     Route: 048
     Dates: start: 20070813, end: 20070817
  33. TEMODAL [Suspect]
     Dosage: 150 MG/M2, QD
     Route: 048
     Dates: start: 20071117, end: 20071121
  34. CAPTOPRIL [Concomitant]
     Route: 048
     Dates: end: 20070406
  35. SENNA-MINT WAF [Concomitant]
     Route: 048
     Dates: start: 20071113, end: 20071130
  36. TEMODAL [Suspect]
     Dosage: 75 MG/M2, QD
     Route: 048
     Dates: start: 20070306, end: 20070413
  37. TEMODAL [Suspect]
     Dosage: 150 MG/M2, QD
     Route: 048
     Dates: start: 20070910, end: 20070914
  38. ALLOPURINOL [Concomitant]
     Route: 048
     Dates: end: 20070720
  39. LEUCOVORIN CALCIUM [Concomitant]
     Indication: PROPHYLAXIS
     Route: 048
     Dates: start: 20070314, end: 20070401
  40. RAMELTEON [Concomitant]
     Route: 048
     Dates: start: 20070910, end: 20080123

REACTIONS (20)
  - DEEP VEIN THROMBOSIS [None]
  - C-REACTIVE PROTEIN INCREASED [None]
  - PNEUMONIA ASPIRATION [None]
  - WHITE BLOOD CELL COUNT DECREASED [None]
  - PLATELET COUNT DECREASED [None]
  - PNEUMOCYSTIS JIROVECI PNEUMONIA [None]
  - DISEASE PROGRESSION [None]
  - COMPRESSION FRACTURE [None]
  - ANAEMIA [None]
  - BRAIN OEDEMA [None]
  - NEUTROPHIL COUNT DECREASED [None]
  - CONSTIPATION [None]
  - DERMATITIS [None]
  - DECREASED APPETITE [None]
  - HEADACHE [None]
  - HERPES SIMPLEX [None]
  - CONVULSION [None]
  - OTITIS EXTERNA [None]
  - LYMPHOCYTE COUNT DECREASED [None]
  - MALAISE [None]
